FAERS Safety Report 17984700 (Version 1)
Quarter: 2020Q3

REPORT INFORMATION
  Report Type: Spontaneous
  Country: US (occurrence: US)
  Receive Date: 20200706
  Receipt Date: 20200706
  Transmission Date: 20201103
  Serious: No
  Sender: FDA-Public Use
  Company Number: US-SA-2020SA173417

PATIENT

DRUGS (5)
  1. HYDROCHLOROTHIAZIDE. [Concomitant]
     Active Substance: HYDROCHLOROTHIAZIDE
  2. ATORVASTATIN [Concomitant]
     Active Substance: ATORVASTATIN
  3. AMLODIPINE;BENAZEPRIL [Concomitant]
     Dosage: UNK
  4. MELOXICAM. [Concomitant]
     Active Substance: MELOXICAM
  5. DUPIXENT [Suspect]
     Active Substance: DUPILUMAB
     Indication: DERMATITIS ATOPIC
     Dosage: 300 MG, QOW
     Route: 058
     Dates: start: 20200207

REACTIONS (2)
  - Skin irritation [Not Recovered/Not Resolved]
  - Erythema [Not Recovered/Not Resolved]

NARRATIVE: CASE EVENT DATE: 20200625
